FAERS Safety Report 18877785 (Version 3)
Quarter: 2021Q1

REPORT INFORMATION
  Report Type: Report from Study
  Country: KR (occurrence: KR)
  Receive Date: 20210211
  Receipt Date: 20210302
  Transmission Date: 20210420
  Serious: Yes (Hospitalization)
  Sender: FDA-Public Use
  Company Number: KR-ROCHE-2767672

PATIENT
  Age: 70 Year
  Sex: Male
  Weight: 50.3 kg

DRUGS (7)
  1. COBIMETINIB. [Suspect]
     Active Substance: COBIMETINIB
     Route: 048
     Dates: start: 20210209
  2. TAZOFERAN [Concomitant]
     Active Substance: PIPERACILLIN SODIUM\TAZOBACTAM SODIUM
     Route: 042
     Dates: start: 20210205, end: 20210208
  3. MOSAPRIDE [Concomitant]
     Active Substance: MOSAPRIDE
     Route: 048
     Dates: start: 20210209
  4. ATORVASTATIN [Concomitant]
     Active Substance: ATORVASTATIN
     Route: 048
     Dates: start: 20180307
  5. COBIMETINIB. [Suspect]
     Active Substance: COBIMETINIB
     Indication: MALIGNANT MELANOMA
     Dosage: ON 11/FEB/2021, HE RECEIVED MOST RECENT DOSE OF COBIMETINIB.
     Route: 048
     Dates: start: 20210105
  6. HM95573 (RAF KINASE INHIBITOR) [Suspect]
     Active Substance: INVESTIGATIONAL PRODUCT
     Route: 048
     Dates: start: 20210209
  7. HM95573 (RAF KINASE INHIBITOR) [Suspect]
     Active Substance: INVESTIGATIONAL PRODUCT
     Indication: MALIGNANT MELANOMA
     Dosage: DATE OF MOST RECENT DOSE OF PRIOR TO ONSET OF SAE: 29/JAN/2021 AND 09/FEB/2021
     Route: 048
     Dates: start: 20210105, end: 20210204

REACTIONS (1)
  - Ileus [Recovered/Resolved]

NARRATIVE: CASE EVENT DATE: 20210130
